FAERS Safety Report 6840582-3 (Version None)
Quarter: 2010Q3

REPORT INFORMATION
  Report Type: 
  Country: None (occurrence: None)
  Receive Date: 20100714
  Receipt Date: 20100706
  Transmission Date: 20110219
  Serious: Yes (Hospitalization)
  Sender: FDA-Public Use
  Company Number: B0661672A

PATIENT
  Sex: Female

DRUGS (7)
  1. LAMICTAL [Suspect]
     Indication: DEPRESSION
     Route: 048
     Dates: start: 20100401, end: 20100608
  2. DEPAKENE [Suspect]
     Indication: DEPRESSION
     Route: 048
     Dates: start: 20100401, end: 20100608
  3. ZOLOFT [Suspect]
     Indication: DEPRESSION
     Route: 048
     Dates: start: 20100401, end: 20100608
  4. LOXONIN [Concomitant]
     Indication: ACUTE TONSILLITIS
     Route: 048
     Dates: start: 20100531, end: 20100605
  5. PANSPORIN [Concomitant]
     Indication: ACUTE TONSILLITIS
     Route: 048
     Dates: start: 20100531, end: 20100605
  6. ISALON [Concomitant]
     Route: 048
     Dates: start: 20100531
  7. SAXIZON [Concomitant]
     Route: 042
     Dates: start: 20100531

REACTIONS (14)
  - ACUTE TONSILLITIS [None]
  - APHAGIA [None]
  - BLOOD LACTATE DEHYDROGENASE INCREASED [None]
  - DECREASED APPETITE [None]
  - ERYTHEMA [None]
  - LIP SWELLING [None]
  - LYMPHOCYTE COUNT DECREASED [None]
  - MONOCYTE COUNT INCREASED [None]
  - OROPHARYNGEAL PAIN [None]
  - PHARYNGITIS [None]
  - PYREXIA [None]
  - STOMATITIS [None]
  - TOXIC SKIN ERUPTION [None]
  - WHITE BLOOD CELL COUNT INCREASED [None]
